FAERS Safety Report 25409377 (Version 1)
Quarter: 2025Q2

REPORT INFORMATION
  Report Type: Spontaneous
  Country: CN (occurrence: CN)
  Receive Date: 20250607
  Receipt Date: 20250607
  Transmission Date: 20250716
  Serious: Yes (Hospitalization)
  Sender: NOVITIUM PHARMA
  Company Number: CN-NOVITIUMPHARMA-2025CNNVP01303

PATIENT
  Age: 64 Year
  Sex: Male

DRUGS (7)
  1. PYRIDOSTIGMINE BROMIDE [Suspect]
     Active Substance: PYRIDOSTIGMINE BROMIDE
     Indication: Myasthenia gravis
     Route: 048
  2. PYRIDOSTIGMINE BROMIDE [Suspect]
     Active Substance: PYRIDOSTIGMINE BROMIDE
  3. Immune-globulin [Concomitant]
     Indication: Myasthenia gravis
     Route: 042
  4. TACROLIMUS [Concomitant]
     Active Substance: TACROLIMUS
     Indication: Myasthenia gravis
  5. PREDNISONE [Concomitant]
     Active Substance: PREDNISONE
     Indication: Myasthenia gravis
     Dates: start: 202304
  6. PREDNISONE [Concomitant]
     Active Substance: PREDNISONE
  7. TELITACICEPT [Concomitant]
     Active Substance: TELITACICEPT
     Indication: Myasthenia gravis
     Dates: start: 20230607

REACTIONS (2)
  - Abdominal discomfort [Unknown]
  - Salivary hypersecretion [Unknown]
